FAERS Safety Report 21074164 (Version 1)
Quarter: 2022Q3

REPORT INFORMATION
  Report Type: Spontaneous
  Country: AU (occurrence: AU)
  Receive Date: 20220713
  Receipt Date: 20220713
  Transmission Date: 20221027
  Serious: Yes (Other)
  Sender: FDA-Public Use
  Company Number: AU-SA-2020SA108778

PATIENT
  Age: 60 Year
  Sex: Female

DRUGS (1)
  1. CARDIZEM [Suspect]
     Active Substance: DILTIAZEM HYDROCHLORIDE
     Indication: Product used for unknown indication
     Route: 065

REACTIONS (6)
  - Alveolitis [Unknown]
  - Cardiomyopathy [Unknown]
  - Pleural fibrosis [Unknown]
  - Embolism [Unknown]
  - Myopathy [Unknown]
  - Incorrect product administration duration [Unknown]
